FAERS Safety Report 6314354-2 (Version None)
Quarter: 2009Q3

REPORT INFORMATION
  Report Type: 
  Country: None (occurrence: None)
  Receive Date: 20090819
  Receipt Date: 20090807
  Transmission Date: 20100115
  Serious: Yes (Other)
  Sender: FDA-Public Use
  Company Number: US-JNJFOC-20090803186

PATIENT
  Sex: Female
  Weight: 103.87 kg

DRUGS (1)
  1. REMICADE [Suspect]
     Indication: RHEUMATOID ARTHRITIS
     Dosage: DOSE PER PATIENT 11 VIALS
     Route: 042

REACTIONS (1)
  - LUPUS-LIKE SYNDROME [None]
